FAERS Safety Report 8958722 (Version 1)
Quarter: 2012Q4

REPORT INFORMATION
  Report Type: 
  Country: US (occurrence: US)
  Receive Date: 20121212
  Receipt Date: 20121212
  Transmission Date: 20130627
  Serious: Yes (Death, Other)
  Sender: FDA-Public Use
  Company Number: US-ROCHE-635620

PATIENT

DRUGS (11)
  1. RITUXIMAB [Suspect]
     Indication: MANTLE CELL LYMPHOMA
     Dosage: RECEIVED ON DAY 1 OF CYCLE 1 AND 2
     Route: 042
  2. DOXORUBICIN [Suspect]
     Indication: MANTLE CELL LYMPHOMA
     Dosage: On day 1
     Route: 042
  3. CYCLOPHOSPHAMIDE [Suspect]
     Indication: MANTLE CELL LYMPHOMA
     Dosage: 800 mg/m2 on day 1 and 200 mg/m2/day on days 2-5
     Route: 042
  4. VINCRISTINE [Suspect]
     Indication: MANTLE CELL LYMPHOMA
     Dosage: 1.5 mg/m2 on days 1 and 8 (capped at 2 mg)
     Route: 042
  5. METHOTREXATE [Suspect]
     Indication: MANTLE CELL LYMPHOMA
     Dosage: 1.2 g/m2 on day 10 over 1 hour immediately followed by 5.52 g/m2 over 23 hour
     Route: 042
  6. FOLINIC ACID [Suspect]
     Indication: MANTLE CELL LYMPHOMA
     Dosage: the first dose was 180 mg/m2 followed by 12 mg/m2 every 6 h for at least 10 doses
     Route: 042
  7. CYTARABINE [Suspect]
     Indication: MANTLE CELL LYMPHOMA
     Dosage: 2 g/m2 on days 1 and 2
     Route: 042
  8. ETOPOSIDE [Suspect]
     Indication: MANTLE CELL LYMPHOMA
     Dosage: on days 1-5
     Route: 042
  9. IFOSFAMIDE [Suspect]
     Indication: MANTLE CELL LYMPHOMA
     Dosage: 1.5 g/m2 on days 1-5
     Route: 042
  10. MESNA [Suspect]
     Indication: MANTLE CELL LYMPHOMA
     Route: 042
  11. G-CSF [Concomitant]
     Route: 065

REACTIONS (15)
  - Neoplasm malignant [Fatal]
  - Non-small cell lung cancer [Fatal]
  - Mantle cell lymphoma [Unknown]
  - Neuropathy peripheral [Unknown]
  - Pleural effusion [Unknown]
  - Bacteraemia [Unknown]
  - Empyema [Unknown]
  - Mucosal inflammation [Unknown]
  - Neutropenia [Unknown]
  - Anaemia [Unknown]
  - Thrombocytopenia [Unknown]
  - Febrile neutropenia [Unknown]
  - Infection [Unknown]
  - Diarrhoea [Unknown]
  - Dyspnoea [Unknown]
